FAERS Safety Report 11404327 (Version 1)
Quarter: 2015Q3

REPORT INFORMATION
  Report Type: Spontaneous
  Country: US (occurrence: US)
  Receive Date: 20150821
  Receipt Date: 20150821
  Transmission Date: 20151125
  Serious: Yes (Hospitalization)
  Sender: FDA-Public Use
  Company Number: 2015SP002817

PATIENT
  Age: 37 Year
  Sex: Female
  Weight: 106 kg

DRUGS (4)
  1. LATUDA [Suspect]
     Active Substance: LURASIDONE HYDROCHLORIDE
     Indication: RESTLESSNESS
     Route: 048
     Dates: start: 20150427
  2. TRAZODONE [Concomitant]
     Active Substance: TRAZODONE HYDROCHLORIDE
     Route: 048
     Dates: start: 20140315, end: 20150506
  3. LATUDA [Suspect]
     Active Substance: LURASIDONE HYDROCHLORIDE
     Indication: RESTLESSNESS
     Route: 048
     Dates: start: 20150506
  4. TRAZODONE [Concomitant]
     Active Substance: TRAZODONE HYDROCHLORIDE
     Route: 048
     Dates: start: 20150506

REACTIONS (5)
  - Abnormal behaviour [Not Recovered/Not Resolved]
  - Hallucination [Not Recovered/Not Resolved]
  - Off label use [Unknown]
  - Conversion disorder [Not Recovered/Not Resolved]
  - Frustration [Not Recovered/Not Resolved]

NARRATIVE: CASE EVENT DATE: 2015
